FAERS Safety Report 18886485 (Version 1)
Quarter: 2021Q1

REPORT INFORMATION
  Report Type: Spontaneous
  Country: US (occurrence: US)
  Receive Date: 20210212
  Receipt Date: 20210212
  Transmission Date: 20210420
  Serious: No
  Sender: FDA-Public Use
  Company Number: US-009507513-2101USA011420

PATIENT
  Age: 59 Year
  Sex: Male

DRUGS (7)
  1. KEYTRUDA [Suspect]
     Active Substance: PEMBROLIZUMAB
     Indication: BLADDER CANCER STAGE 0, WITHOUT CANCER IN SITU
     Dosage: UNK UNK, Q3W
     Route: 042
     Dates: start: 202005
  2. ASCORBIC ACID. [Concomitant]
     Active Substance: ASCORBIC ACID
     Dosage: UNK, QD
  3. HONEY [Concomitant]
     Active Substance: HONEY
     Dosage: UNK, QD
  4. VITAMINS (UNSPECIFIED) [Concomitant]
     Active Substance: VITAMINS
     Dosage: UNK, QD
  5. TICE BCG [Suspect]
     Active Substance: BACILLUS CALMETTE-GUERIN SUBSTRAIN TICE LIVE ANTIGEN
     Indication: BLADDER CANCER
     Dosage: ONCE A WEEK OR ONCE EVERY TWO WEEKS
     Dates: start: 2019
  6. ANTINEOPLASTIC (UNSPECIFIED) [Concomitant]
     Active Substance: UNSPECIFIED INGREDIENT
     Dosage: UNK
     Dates: start: 2019
  7. GARLIC. [Concomitant]
     Active Substance: GARLIC
     Dosage: UNK, QD

REACTIONS (2)
  - Pruritus [Not Recovered/Not Resolved]
  - Bladder operation [Unknown]

NARRATIVE: CASE EVENT DATE: 202011
